FAERS Safety Report 7736630-9 (Version None)
Quarter: 2011Q3

REPORT INFORMATION
  Report Type: 
  Country: None (occurrence: None)
  Receive Date: 20110908
  Receipt Date: 20110906
  Transmission Date: 20111222
  Serious: Yes (Other)
  Sender: FDA-Public Use
  Company Number: US-PFIZER INC-2011209514

PATIENT
  Sex: Male
  Weight: 88.435 kg

DRUGS (7)
  1. IBUPROFEN [Concomitant]
     Dosage: UNK
  2. SYNTHROID [Concomitant]
     Indication: HYPOTHYROIDISM
     Dosage: 150 MCG, DAILY
     Route: 048
  3. TYLENOL-500 [Concomitant]
     Dosage: UNK
     Route: 048
  4. ZOLOFT [Suspect]
     Indication: DEPRESSION
  5. ZOLOFT [Suspect]
     Indication: ANXIETY
     Dosage: 100 MG, DAILY
     Route: 048
     Dates: start: 20100101
  6. CRESTOR [Concomitant]
     Indication: BLOOD CHOLESTEROL INCREASED
     Dosage: 10 MG, DAILY
     Route: 048
  7. PROTONIX [Concomitant]
     Indication: HYPERCHLORHYDRIA
     Dosage: 100 MG, DAILY
     Route: 048

REACTIONS (3)
  - HYPERHIDROSIS [None]
  - PHARYNGEAL OEDEMA [None]
  - PAIN [None]
